FAERS Safety Report 16215835 (Version 1)
Quarter: 2019Q2

REPORT INFORMATION
  Report Type: Spontaneous
  Country: US (occurrence: US)
  Receive Date: 20190419
  Receipt Date: 20190419
  Transmission Date: 20190711
  Serious: No
  Sender: FDA-Public Use
  Company Number: US-INSMED, INC.-US-INS-19-00312

PATIENT
  Sex: Female

DRUGS (2)
  1. LAMIRA NEBULIZER SYSTEM [Suspect]
     Active Substance: DEVICE
  2. ARIKAYCE [Suspect]
     Active Substance: AMIKACIN
     Indication: BACTERIAL INFECTION
     Dates: start: 201810

REACTIONS (10)
  - Dry mouth [Unknown]
  - Tinnitus [Unknown]
  - Somnolence [Unknown]
  - Cough [Unknown]
  - Eye pruritus [Unknown]
  - Dry eye [Unknown]
  - Cataract [Unknown]
  - Dry throat [Unknown]
  - Headache [Unknown]
  - Dizziness [Unknown]
